FAERS Safety Report 8538673 (Version 2)
Quarter: 2013Q2

REPORT INFORMATION
  Report Type: Spontaneous
  Country: US (occurrence: None)
  Receive Date: 20120315
  Receipt Date: 20120703
  Transmission Date: 20140414
  Serious: No
  Sender: FDA-Public Use
  Company Number: PHHY2011US45445

PATIENT
  Age: 36 Year
  Sex: Female
  Weight: 86.2 kg

DRUGS (14)
  1. GILENYA [Suspect]
     Indication: MULTIPLE SCLEROSIS
     Route: 048
     Dates: start: 20101229
  2. PROTONIX [Concomitant]
  3. MULTIVITAMINS (MVI) (ASCORBIC ACID, ERGOCALCIFEROL, FOLIC ACID, NICOTINAMIDE, PANTHENOL, RETINOL, RI [Concomitant]
  4. CALCIUM CARBONATE [Concomitant]
  5. VITAMIN D (ERGOCALCIFEROL) [Concomitant]
  6. VITAMIN B12 [Concomitant]
  7. NEURONTIN (GABAPENTIN) [Concomitant]
  8. NEXIUM (ESOMEPRAZOLE MAGNESIUM) [Concomitant]
  9. RESTORIL (TEMAZEPAM) [Concomitant]
  10. CYANOCOBALAMIN (CYANOCOBALAMIN) [Concomitant]
  11. VITAMIN C (ASCORBIC ACID) [Concomitant]
  12. BLACK COHOSH (CIMICIFUGA RACEMOSA ROOT) [Concomitant]
  13. VITAMIN D3 (COLECALCIFEROL) [Concomitant]
  14. PRENATAL [Concomitant]

REACTIONS (7)
  - FATIGUE [None]
  - ALOPECIA [None]
  - Muscular weakness [None]
  - Hypoaesthesia [None]
  - Muscle spasms [None]
  - Mental impairment [None]
  - Musculoskeletal disorder [None]
